FAERS Safety Report 8302515-2 (Version None)
Quarter: 2012Q2

REPORT INFORMATION
  Report Type: 
  Country: None (occurrence: None)
  Receive Date: 20120420
  Receipt Date: 20120405
  Transmission Date: 20120825
  Serious: Yes (Other)
  Sender: FDA-Public Use
  Company Number: CHPA2012US008989

PATIENT
  Sex: Female

DRUGS (3)
  1. EXCEDRIN (MIGRAINE) [Suspect]
     Indication: MIGRAINE
     Dosage: 1 DF, PRN
     Route: 048
  2. EXCEDRIN EXTRA STRENGTH TABLETS [Suspect]
     Indication: MIGRAINE
     Dosage: 1 DF, PRN
     Route: 048
  3. EXCEDRIN TENSION HEADACHE CAPLETS [Suspect]
     Indication: MIGRAINE
     Dosage: 1 DF, PRN
     Route: 048

REACTIONS (6)
  - THROMBOCYTOPENIA [None]
  - PAIN IN EXTREMITY [None]
  - HEADACHE [None]
  - RHEUMATOID ARTHRITIS [None]
  - UNDERDOSE [None]
  - OFF LABEL USE [None]
